FAERS Safety Report 16808542 (Version 1)
Quarter: 2019Q3

REPORT INFORMATION
  Report Type: Spontaneous
  Country: FR (occurrence: FR)
  Receive Date: 20190916
  Receipt Date: 20190916
  Transmission Date: 20191005
  Serious: Yes (Other)
  Sender: FDA-Public Use
  Company Number: FR-TEVA-2019-FR-1106412

PATIENT
  Age: 47 Year
  Sex: Male

DRUGS (5)
  1. MODOPAR L.P. 125 100 MG/25 MG, GELULE A LIBERATION PROLONGEE [Suspect]
     Active Substance: BENSERAZIDE HYDROCHLORIDE\LEVODOPA
     Indication: PARKINSON^S DISEASE
     Dosage: 1 DOSAGE FORM PER DAY
     Route: 048
     Dates: start: 201809
  2. AZILECT [Suspect]
     Active Substance: RASAGILINE MESYLATE
     Indication: PARKINSON^S DISEASE
     Route: 048
     Dates: start: 201003
  3. DOPACEPTIN [Suspect]
     Active Substance: APOMORPHINE HYDROCHLORIDE
     Indication: PARKINSON^S DISEASE
     Dosage: 5.5 MILLIGRAM PER HOUR
     Route: 058
     Dates: start: 20180914
  4. MODOPAR 125 (100 MG/25 MG), GELULE [Suspect]
     Active Substance: BENSERAZIDE HYDROCHLORIDE\LEVODOPA
     Indication: PARKINSON^S DISEASE
     Dosage: 5 DOSAGE FORMS PER DAY
     Route: 048
     Dates: start: 201104
  5. DOMPERIDONE [Concomitant]
     Active Substance: DOMPERIDONE

REACTIONS (1)
  - Impulse-control disorder [Recovering/Resolving]

NARRATIVE: CASE EVENT DATE: 201906
